FAERS Safety Report 7620824-7 (Version None)
Quarter: 2011Q3

REPORT INFORMATION
  Report Type: 
  Country: None (occurrence: None)
  Receive Date: 20110719
  Receipt Date: 20110714
  Transmission Date: 20111222
  Serious: No
  Sender: FDA-Public Use
  Company Number: US-PFIZER INC-2011160124

PATIENT
  Sex: Female

DRUGS (4)
  1. KEFLEX [Suspect]
     Dosage: 500 MG, EVERY 8 HOURS
     Route: 048
  2. IBUPROFEN [Concomitant]
     Indication: TOOTHACHE
     Dosage: 200 MG, DAILY
     Route: 048
  3. CLEOCIN HYDROCHLORIDE [Suspect]
     Indication: TOOTH INFECTION
     Dosage: EVERY 6 HOURS
     Dates: end: 20110101
  4. AMOXICILLIN [Suspect]
     Dosage: UNK

REACTIONS (2)
  - URTICARIA [None]
  - DIARRHOEA [None]
